FAERS Safety Report 5743419-9 (Version None)
Quarter: 2008Q2

REPORT INFORMATION
  Report Type: 
  Country: None (occurrence: None)
  Receive Date: 20080519
  Receipt Date: 20080519
  Transmission Date: 20081010
  Serious: Yes (Other)
  Sender: FDA-Public Use
  Company Number: None

PATIENT
  Sex: Female
  Weight: 99.7913 kg

DRUGS (1)
  1. PROVIGIL [Suspect]
     Indication: NARCOLEPSY
     Dosage: 1/2 TABLET FOR 1WK DAILY MORNING MOUTH,THEN 1 TABLET DAILY IN MORNING MOUTH
     Route: 048
     Dates: start: 20040911, end: 20041101

REACTIONS (1)
  - BLOOD PRESSURE ABNORMAL [None]
